FAERS Safety Report 9372782 (Version 1)
Quarter: 2013Q2

REPORT INFORMATION
  Report Type: Report from Study
  Country: US (occurrence: US)
  Receive Date: 20130627
  Receipt Date: 20130627
  Transmission Date: 20140414
  Serious: Yes (Other)
  Sender: FDA-Public Use
  Company Number: US-MYLANLABS-2013S1008426

PATIENT
  Sex: Male

DRUGS (2)
  1. CLOZAPINE TABLETS [Suspect]
     Dates: start: 20121209, end: 20130415
  2. CLOZAPINE TABLETS [Suspect]
     Dates: end: 20130511

REACTIONS (1)
  - Tubulointerstitial nephritis [Not Recovered/Not Resolved]
